FAERS Safety Report 20700924 (Version 1)
Quarter: 2022Q2

REPORT INFORMATION
  Report Type: Spontaneous
  Country: US (occurrence: None)
  Receive Date: 20220411
  Receipt Date: 20220411
  Transmission Date: 20220720
  Serious: Yes (Other)
  Sender: FDA-Public Use
  Company Number: None

PATIENT
  Age: 69 Year
  Sex: Male
  Weight: 109.35 kg

DRUGS (7)
  1. EVUSHELD [Suspect]
     Active Substance: CILGAVIMAB\TIXAGEVIMAB
     Indication: Chronic lymphocytic leukaemia
     Dates: start: 20220125, end: 20220309
  2. EVUSHELD [Suspect]
     Active Substance: CILGAVIMAB\TIXAGEVIMAB
     Indication: Hypogammaglobulinaemia
  3. ibrutinib 560 T.I.D. [Concomitant]
     Dates: start: 20130101
  4. rosuvastatin 5 mg daily [Concomitant]
  5. amlodipine 10 mg daily [Concomitant]
  6. carvedilol 3.125 BID [Concomitant]
  7. chlorthalidone 25 mg daily [Concomitant]

REACTIONS (1)
  - Atrial fibrillation [None]

NARRATIVE: CASE EVENT DATE: 20220309
